FAERS Safety Report 9178440 (Version 6)
Quarter: 2013Q2

REPORT INFORMATION
  Report Type: Report from Study
  Country: AR (occurrence: AR)
  Receive Date: 20130321
  Receipt Date: 20130529
  Transmission Date: 20140414
  Serious: Yes (Death)
  Sender: FDA-Public Use
  Company Number: AR-ROCHE-1204170

PATIENT
  Age: 63 Year
  Sex: Male

DRUGS (8)
  1. VEMURAFENIB [Suspect]
     Indication: METASTATIC MALIGNANT MELANOMA
     Route: 048
     Dates: start: 20120601, end: 20120929
  2. VEMURAFENIB [Suspect]
     Route: 048
     Dates: start: 20121015, end: 20121218
  3. VEMURAFENIB [Suspect]
     Dosage: DOSE REDUCED, LAST DOSE PRIOT TO EVENT ON 17/MAR/2013
     Route: 048
     Dates: start: 20121226, end: 20130318
  4. ASPIRIN [Concomitant]
     Route: 065
     Dates: start: 200910
  5. OMEPRAZOLE [Concomitant]
     Route: 065
     Dates: start: 200910
  6. CARVEDILOL [Concomitant]
     Route: 065
     Dates: start: 20120610
  7. AMLODIPINE [Concomitant]
     Route: 065
     Dates: start: 20120610
  8. METFORMIN [Concomitant]
     Indication: OBESITY
     Route: 065
     Dates: start: 20120712

REACTIONS (1)
  - Acute myocardial infarction [Fatal]
